FAERS Safety Report 24718338 (Version 7)
Quarter: 2025Q1

REPORT INFORMATION
  Report Type: Spontaneous
  Country: CO (occurrence: CO)
  Receive Date: 20241210
  Receipt Date: 20250310
  Transmission Date: 20250408
  Serious: No
  Sender: PFIZER
  Company Number: CO-PFIZER INC-202400313143

PATIENT
  Age: 13 Year
  Sex: Male

DRUGS (1)
  1. GENOTROPIN [Suspect]
     Active Substance: SOMATROPIN
     Indication: Growth hormone deficiency
     Dosage: 1.8 MG, DAILY
     Route: 058
     Dates: start: 202310

REACTIONS (4)
  - Device connection issue [Unknown]
  - Device delivery system issue [Unknown]
  - Device mechanical issue [Unknown]
  - Wrong technique in device usage process [Unknown]
